FAERS Safety Report 13823854 (Version 1)
Quarter: 2017Q3

REPORT INFORMATION
  Report Type: Spontaneous
  Country: US (occurrence: US)
  Receive Date: 20170802
  Receipt Date: 20170802
  Transmission Date: 20171127
  Serious: No
  Sender: FDA-Public Use
  Company Number: US-PFIZER INC-2017331287

PATIENT
  Age: 63 Year
  Sex: Female

DRUGS (1)
  1. IBRANCE [Suspect]
     Active Substance: PALBOCICLIB
     Dosage: 125 MG, CYCLIC (125MG Q DAY X21, 7 DAYS OFF)
     Dates: start: 20170708

REACTIONS (3)
  - Headache [Unknown]
  - Intentional product misuse [Unknown]
  - Diarrhoea [Unknown]
